FAERS Safety Report 6654489-8 (Version None)
Quarter: 2010Q1

REPORT INFORMATION
  Report Type: 
  Country: None (occurrence: None)
  Receive Date: 20100326
  Receipt Date: 20100318
  Transmission Date: 20100710
  Serious: Yes (Other)
  Sender: FDA-Public Use
  Company Number: US-PFIZER INC-2010035982

PATIENT
  Sex: Female
  Weight: 61.7 kg

DRUGS (4)
  1. LIPITOR [Suspect]
     Indication: BLOOD CHOLESTEROL INCREASED
     Dosage: 10 MG, DAILY
     Route: 048
     Dates: start: 20100315
  2. LIPITOR [Suspect]
     Dosage: 20 MG, 1X/DAY
     Route: 048
  3. LEVOTHYROXINE [Concomitant]
     Indication: THYROIDECTOMY
     Dosage: UNK
  4. ZETIA [Concomitant]
     Indication: BLOOD CHOLESTEROL INCREASED
     Dosage: UNK
     Dates: start: 20100315

REACTIONS (3)
  - MUSCLE SPASMS [None]
  - THYROID FUNCTION TEST ABNORMAL [None]
  - VITAMIN D DECREASED [None]
